FAERS Safety Report 9934104 (Version 1)
Quarter: 2014Q1

REPORT INFORMATION
  Report Type: Spontaneous
  Country: US (occurrence: US)
  Receive Date: 20140228
  Receipt Date: 20140228
  Transmission Date: 20141002
  Serious: No
  Sender: FDA-Public Use
  Company Number: US-BAYER-2014-031516

PATIENT
  Age: 60 Year
  Sex: Female
  Weight: 84 kg

DRUGS (7)
  1. ALEVE CAPLET [Suspect]
     Indication: ARTHRITIS
     Dosage: 1 DF, BID
     Route: 048
     Dates: start: 20140222
  2. KEPPRA [Concomitant]
  3. LYRICA [Concomitant]
  4. DILANTIN [Concomitant]
  5. CYMBALTA [Concomitant]
  6. RISPERDAL [Concomitant]
  7. FOLIC ACID [Concomitant]

REACTIONS (1)
  - Abdominal discomfort [Recovered/Resolved]
